FAERS Safety Report 11144388 (Version 1)
Quarter: 2015Q2

REPORT INFORMATION
  Report Type: Spontaneous
  Country: US (occurrence: None)
  Receive Date: 20150526
  Receipt Date: 20150526
  Transmission Date: 20150821
  Serious: Yes (Death)
  Sender: FDA-Public Use
  Company Number: 2015SGN00753

PATIENT
  Sex: Female

DRUGS (5)
  1. DOXORUBICIN (DOXORUBICIN) INJECTION [Suspect]
     Active Substance: DOXORUBICIN
     Indication: T-CELL LYMPHOMA
  2. PREDNISONE (PREDNISONE) ORAL [Suspect]
     Active Substance: PREDNISONE
     Indication: T-CELL LYMPHOMA
  3. VINCRISTINE (VINCRISTINE) INJECTION [Suspect]
     Active Substance: VINCRISTINE
     Indication: T-CELL LYMPHOMA
  4. ADCETRIS [Suspect]
     Active Substance: BRENTUXIMAB VEDOTIN
     Indication: ADULT T-CELL LYMPHOMA/LEUKAEMIA
  5. CYCLOPHOSPHAMIDE (CYCLOPHOSPHAMIDE) INJECTION [Suspect]
     Active Substance: CYCLOPHOSPHAMIDE
     Indication: T-CELL LYMPHOMA

REACTIONS (3)
  - Skin lesion [None]
  - White blood cell count increased [None]
  - Blood lactate dehydrogenase increased [None]
